FAERS Safety Report 6902599-X (Version None)
Quarter: 2010Q3

REPORT INFORMATION
  Report Type: 
  Country: None (occurrence: None)
  Receive Date: 20100803
  Receipt Date: 20080602
  Transmission Date: 20110219
  Serious: Yes (Other)
  Sender: FDA-Public Use
  Company Number: US-PFIZER INC-2008019608

PATIENT
  Sex: Female
  Weight: 59.9 kg

DRUGS (2)
  1. LYRICA [Suspect]
     Indication: FIBROMYALGIA
     Dates: start: 20080219, end: 20080220
  2. NEURONTIN [Concomitant]
     Dates: start: 20080220

REACTIONS (7)
  - DIZZINESS [None]
  - HEADACHE [None]
  - HYPOTENSION [None]
  - LOSS OF CONSCIOUSNESS [None]
  - MUSCULAR WEAKNESS [None]
  - SOMNOLENCE [None]
  - TREMOR [None]
